FAERS Safety Report 26130480 (Version 1)
Quarter: 2025Q4

REPORT INFORMATION
  Report Type: Spontaneous
  Country: US (occurrence: None)
  Receive Date: 20251205
  Receipt Date: 20251205
  Transmission Date: 20260117
  Serious: Yes (Other)
  Sender: FDA-CTU
  Company Number: None

PATIENT
  Age: 67 Year
  Sex: Female
  Weight: 72 kg

DRUGS (6)
  1. ELIQUIS [Suspect]
     Active Substance: APIXABAN
     Indication: Atrial fibrillation
     Dosage: 1 TABLET(1) TWICE A DAY ORAL
     Route: 048
  2. ELIQUIS [Concomitant]
     Active Substance: APIXABAN
  3. Calquence, [Concomitant]
  4. Pantoprazole, [Concomitant]
  5. Boston Scientific pacemaker [Concomitant]
  6. TYLENOL [Concomitant]
     Active Substance: ACETAMINOPHEN

REACTIONS (4)
  - Product packaging quantity issue [None]
  - Product use issue [None]
  - Circumstance or information capable of leading to medication error [None]
  - Victim of abuse [None]

NARRATIVE: CASE EVENT DATE: 20251202
